FAERS Safety Report 9577642 (Version 2)
Quarter: 2013Q4

REPORT INFORMATION
  Report Type: Spontaneous
  Country: US (occurrence: US)
  Receive Date: 20131001
  Receipt Date: 20131001
  Transmission Date: 20140711
  Serious: No
  Sender: FDA-Public Use
  Company Number: US-AMGEN-USASP2013004715

PATIENT
  Age: 35 Year
  Sex: Female
  Weight: 84.81 kg

DRUGS (8)
  1. ENBREL [Suspect]
     Indication: RHEUMATOID ARTHRITIS
     Dosage: 50 MG, QWK
     Route: 058
     Dates: start: 20121016, end: 20121119
  2. METHOTREXATE [Concomitant]
     Indication: RHEUMATOID ARTHRITIS
     Dosage: 10 MG, QWK
     Route: 048
     Dates: start: 20121004
  3. LANSOPRAZOLE [Concomitant]
     Dosage: 15 MG, UNK
     Route: 048
  4. WELLBUTRIN [Concomitant]
     Indication: ANXIETY
     Dosage: 150 MG, QD
     Route: 048
     Dates: start: 201207
  5. WELLBUTRIN [Concomitant]
     Indication: DEPRESSION
  6. MOBIC [Concomitant]
     Indication: RHEUMATOID ARTHRITIS
     Dosage: 15 MG, QD
     Route: 048
     Dates: start: 20121018
  7. CALCIUM D                          /00944201/ [Concomitant]
     Dosage: 600 UNK, UNK
     Route: 048
  8. FOLIC ACID [Concomitant]
     Dosage: UNK
     Route: 048

REACTIONS (5)
  - Nausea [Recovered/Resolved]
  - Urticaria [Unknown]
  - Injection site reaction [Recovered/Resolved]
  - Injection site pruritus [Recovered/Resolved]
  - Injection site rash [Recovered/Resolved]
